FAERS Safety Report 20027639 (Version 2)
Quarter: 2021Q4

REPORT INFORMATION
  Report Type: Spontaneous
  Country: US (occurrence: US)
  Receive Date: 20211103
  Receipt Date: 20211120
  Transmission Date: 20220303
  Serious: Yes (Death, Life-Threatening, Hospitalization, Other)
  Sender: FDA-Public Use
  Company Number: US-MLMSERVICE-20211014-3169414-1

PATIENT
  Age: 24 Year
  Sex: Male

DRUGS (4)
  1. DEXAMETHASONE [Suspect]
     Active Substance: DEXAMETHASONE
     Indication: COVID-19 pneumonia
     Dosage: UNK
     Route: 065
  2. PROPOFOL [Suspect]
     Active Substance: PROPOFOL
     Indication: Sedation
     Dosage: 60 MICROGRAM/KILOGRAM 1 MINUTE (50-60 MCG/KG/MIN)
     Route: 065
  3. PROPOFOL [Suspect]
     Active Substance: PROPOFOL
     Dosage: 50 MICROGRAM/KILOGRAM/ MINUTE (50-60 MCG/KG/MIN)
     Route: 065
  4. REMDESIVIR [Concomitant]
     Active Substance: REMDESIVIR
     Indication: COVID-19 pneumonia
     Dosage: UNK
     Route: 065

REACTIONS (7)
  - Metabolic acidosis [Fatal]
  - Bradycardia [Fatal]
  - Hyperleukocytosis [Fatal]
  - Cardiac arrest [Fatal]
  - Propofol infusion syndrome [Fatal]
  - Drug ineffective [Unknown]
  - Off label use [Unknown]
